FAERS Safety Report 7347682-2 (Version None)
Quarter: 2011Q1

REPORT INFORMATION
  Report Type: 
  Country: None (occurrence: None)
  Receive Date: 20110311
  Receipt Date: 20110304
  Transmission Date: 20110831
  Serious: Yes (Death)
  Sender: FDA-Public Use
  Company Number: B0520268A

PATIENT
  Sex: Male

DRUGS (13)
  1. DOMPERIDONE [Concomitant]
     Indication: NAUSEA
     Dates: start: 20080407
  2. ENZASTAURIN [Suspect]
     Indication: BILE DUCT CANCER
     Dosage: 250MG TWICE PER DAY
     Route: 048
     Dates: start: 20080403, end: 20080424
  3. OXYCONTIN [Concomitant]
     Dates: start: 20080321
  4. ATENOLOL [Concomitant]
     Dates: start: 20020101
  5. INNOHEP [Concomitant]
     Indication: PHLEBITIS
     Dates: start: 20070823
  6. DIFFU K [Concomitant]
     Dates: start: 20080417
  7. OXYNORM [Concomitant]
     Dates: start: 20080129
  8. NEXIUM [Concomitant]
     Dates: start: 20080129
  9. MOVIPREP [Concomitant]
     Indication: CONSTIPATION PROPHYLAXIS
     Dates: start: 20080303
  10. SUCRALFATE [Concomitant]
     Dates: start: 20080401
  11. LASIX [Concomitant]
     Dates: start: 20080331
  12. DAFLON [Concomitant]
     Dates: start: 20080409
  13. CIMETIDINE [Suspect]
     Indication: BILE DUCT CANCER
     Dosage: 400MG SINGLE DOSE
     Route: 048
     Dates: start: 20080402, end: 20080402

REACTIONS (6)
  - DEATH [None]
  - DYSPNOEA [None]
  - DISEASE PROGRESSION [None]
  - OEDEMA PERIPHERAL [None]
  - FATIGUE [None]
  - DECREASED APPETITE [None]
